FAERS Safety Report 6921810-2 (Version None)
Quarter: 2010Q3

REPORT INFORMATION
  Report Type: 
  Country: None (occurrence: None)
  Receive Date: 20100812
  Receipt Date: 20100804
  Transmission Date: 20110219
  Serious: Yes (Other)
  Sender: FDA-Public Use
  Company Number: GB-BRISTOL-MYERS SQUIBB COMPANY-15225691

PATIENT
  Age: 67 Year
  Sex: Male

DRUGS (3)
  1. ERBITUX [Suspect]
     Indication: NEOPLASM MALIGNANT
     Dosage: 16JUN10-500 MG;04AUG10-ONG (400MG ONCE PER WEEK).
     Route: 042
     Dates: start: 20100616
  2. OXALIPLATIN [Concomitant]
     Dosage: 10MG
     Dates: start: 20100616
  3. FLUOROURACIL [Concomitant]

REACTIONS (6)
  - ALOPECIA [None]
  - DERMATITIS ACNEIFORM [None]
  - NAUSEA [None]
  - PHOTOPHOBIA [None]
  - SKIN REACTION [None]
  - SKIN TOXICITY [None]
